FAERS Safety Report 17180928 (Version 1)
Quarter: 2019Q4

REPORT INFORMATION
  Report Type: Spontaneous
  Country: JP (occurrence: JP)
  Receive Date: 20191219
  Receipt Date: 20191219
  Transmission Date: 20200122
  Serious: Yes (Death)
  Sender: FDA-Public Use
  Company Number: JP-ELI_LILLY_AND_COMPANY-JP201910008967

PATIENT
  Age: 77 Year
  Weight: 40 kg

DRUGS (3)
  1. DOCETAXEL. [Suspect]
     Active Substance: DOCETAXEL
     Indication: LUNG ADENOCARCINOMA STAGE IV
     Dosage: 50 MG/M2, CYCLICAL
     Route: 041
     Dates: start: 20190215, end: 20190215
  2. G LASTA [Concomitant]
     Active Substance: PEGFILGRASTIM
     Dosage: 3.6 MG
     Route: 058
     Dates: start: 20190217, end: 20190217
  3. CYRAMZA [Suspect]
     Active Substance: RAMUCIRUMAB
     Indication: LUNG ADENOCARCINOMA STAGE IV
     Dosage: 10 MG/KG, CYCLICAL
     Route: 041
     Dates: start: 20190215, end: 20190215

REACTIONS (1)
  - Infection [Fatal]

NARRATIVE: CASE EVENT DATE: 20190224
